FAERS Safety Report 8943500 (Version 1)
Quarter: 2012Q4

REPORT INFORMATION
  Report Type: 
  Country: US (occurrence: US)
  Receive Date: 20121204
  Receipt Date: 20121204
  Transmission Date: 20130627
  Serious: No
  Sender: FDA-Public Use
  Company Number: US-PFIZER INC-2012303437

PATIENT
  Age: 60 Year
  Sex: Female
  Weight: 63.49 kg

DRUGS (9)
  1. NEURONTIN [Suspect]
     Indication: PAIN IN EXTREMITY
     Dosage: UNK
  2. NEUROBION [Suspect]
     Indication: PAIN IN EXTREMITY
     Dosage: UNK
  3. METFORMIN [Concomitant]
     Indication: DIABETES
     Dosage: UNK
  4. INSULIN [Concomitant]
     Indication: DIABETES
     Dosage: UNK
  5. AMARYL [Concomitant]
     Indication: DIABETES
     Dosage: UNK
  6. LOSARTAN POTASSIUM [Concomitant]
     Indication: BLOOD PRESSURE HIGH
     Dosage: UNK
  7. HYDROCHLOROTHIAZIDE [Concomitant]
     Indication: BLOOD PRESSURE HIGH
     Dosage: UNK
  8. DILTIAZEM [Concomitant]
     Indication: BLOOD PRESSURE HIGH
     Dosage: UNK
  9. ACIPHEX [Concomitant]
     Indication: HEARTBURN
     Dosage: UNK

REACTIONS (2)
  - Drug ineffective [Unknown]
  - Blood glucose increased [Unknown]
